FAERS Safety Report 20283262 (Version 7)
Quarter: 2022Q1

REPORT INFORMATION
  Report Type: Spontaneous
  Country: IT (occurrence: IT)
  Receive Date: 20220103
  Receipt Date: 20220321
  Transmission Date: 20220424
  Serious: Yes (Death, Hospitalization, Other)
  Sender: FDA-Public Use
  Company Number: IT-Accord-246745

PATIENT
  Age: 52 Year
  Sex: Female

DRUGS (37)
  1. AZACITIDINE [Suspect]
     Active Substance: AZACITIDINE
     Indication: Acute myeloid leukaemia
     Dosage: 75 MILLIGRAM/SQ. METER, QD (75 MILLIGRAM/SQ. METER), START -2020
     Route: 058
  2. AZACITIDINE [Suspect]
     Active Substance: AZACITIDINE
     Dosage: 75 MILLIGRAM/SQ. METER, QD (FOR 7 DAYS ON A 28 DAY-CYCLE), START -2020
     Route: 065
  3. AZACITIDINE [Suspect]
     Active Substance: AZACITIDINE
     Dosage: UNK
  4. AZACITIDINE [Suspect]
     Active Substance: AZACITIDINE
     Dosage: 75 MG/SQM/DAILY FOR 7 DAYS ON A 28 DAY-CYCLE, START -2020
     Dates: start: 2020
  5. AZACITIDINE [Suspect]
     Active Substance: AZACITIDINE
     Indication: Product used for unknown indication
     Dosage: 525 MILLIGRAM, QD,75 MILLIGRAM, START -2020
     Route: 041
  6. CYTARABINE [Suspect]
     Active Substance: CYTARABINE
     Indication: Acute myeloid leukaemia
     Dosage: INDUCTION THERAPY
     Route: 065
     Dates: start: 2018
  7. CYTARABINE [Suspect]
     Active Substance: CYTARABINE
     Dosage: REINDUCTION THERAPY
     Route: 065
     Dates: start: 201910
  8. CYTARABINE [Suspect]
     Active Substance: CYTARABINE
     Dosage: INDUCTION THERAPY WAS FOLLOWED BY FOUR CONSOLIDATION CYCLE
     Route: 065
  9. IDARUBICIN [Suspect]
     Active Substance: IDARUBICIN
     Indication: Acute myeloid leukaemia
     Dosage: INDUCTION THERAPY
     Route: 065
     Dates: start: 2018
  10. IDARUBICIN [Suspect]
     Active Substance: IDARUBICIN
     Dosage: UNK
     Dates: start: 201910
  11. IDARUBICIN [Suspect]
     Active Substance: IDARUBICIN
     Dosage: REINDUCTION THERAPY
     Route: 065
     Dates: start: 2019
  12. ENASIDENIB [Suspect]
     Active Substance: ENASIDENIB
     Indication: Acute myeloid leukaemia
     Dosage: 100 MILLIGRAM, QD, START JAN-2020
     Route: 048
  13. ENASIDENIB [Suspect]
     Active Substance: ENASIDENIB
     Dosage: 100 MILLIGRAM, QD (100 MG/DAILY), START JAN-2020
     Route: 065
  14. FLUDARABINE PHOSPHATE [Suspect]
     Active Substance: FLUDARABINE PHOSPHATE
     Indication: Acute myeloid leukaemia
     Dosage: REINDUCTION THERAPY, START OCT-2019
     Route: 065
  15. ETOPOSIDE [Suspect]
     Active Substance: ETOPOSIDE
     Indication: Acute myeloid leukaemia
     Dosage: INDUCTION THERAPY, START OCT-2019
     Route: 065
  16. CEFTOLOZANE SULFATE\TAZOBACTAM SODIUM [Concomitant]
     Active Substance: CEFTOLOZANE SULFATE\TAZOBACTAM SODIUM
     Indication: Antibiotic therapy
     Dosage: UNK, Q8H (1 G/0.5 G/EVERY 8 H FOR 3 WEEKS), START 2020
     Route: 065
     Dates: end: 2020
  17. AVIBACTAM SODIUM\CEFTAZIDIME [Concomitant]
     Active Substance: AVIBACTAM SODIUM\CEFTAZIDIME
     Indication: Antifungal treatment
     Dosage: 2.5 GRAM, Q8H (2.5 GRAM, TID), START AUG-2020
     Route: 065
  18. AVIBACTAM SODIUM\CEFTAZIDIME [Concomitant]
     Active Substance: AVIBACTAM SODIUM\CEFTAZIDIME
     Indication: Infection
     Dosage: 2.5 GRAM, TID,2.5 G THREE TIMES A DAY, START 2020
     Route: 065
  19. AMPHOTERICIN B [Concomitant]
     Active Substance: AMPHOTERICIN B
     Indication: Antifungal treatment
     Dosage: 3 MILLIGRAM/KILOGRAM, QD (3 MG/KG/DAILY), START 2020
     Route: 065
  20. AMPHOTERICIN B [Concomitant]
     Active Substance: AMPHOTERICIN B
     Indication: Infection
     Dosage: UNK (1, UNK, QD)
     Route: 065
  21. AMPHOTERICIN B [Concomitant]
     Active Substance: AMPHOTERICIN B
     Dosage: 3 MILLIGRAM/KILOGRAM, QD
     Route: 065
  22. AMPHOTERICIN B [Concomitant]
     Active Substance: AMPHOTERICIN B
     Dosage: 3 MILLIGRAM/KILOGRAM, QD, START 2020
  23. CLINDAMYCIN HYDROCHLORIDE [Concomitant]
     Active Substance: CLINDAMYCIN HYDROCHLORIDE
     Indication: Antibiotic therapy
     Dosage: 300 MILLIGRAM, Q6H (300 MG EVERY 6 H FOR 4 WEEKS), START 2020
     Route: 065
  24. COLISTIN [Concomitant]
     Active Substance: COLISTIN
     Indication: Antibiotic therapy
     Dosage: 9 X 10(6) U/THREE TIMES A DAY FOR 2 WEEKS, START 2020
     Route: 065
  25. COLISTIN [Concomitant]
     Active Substance: COLISTIN
     Dosage: 9000000 INTERNATIONAL UNIT, TID, START 2020
     Route: 065
  26. COLISTIN [Concomitant]
     Active Substance: COLISTIN
     Dosage: UNK, START 2020
     Route: 065
  27. CEFTAZIDIME [Concomitant]
     Active Substance: CEFTAZIDIME
     Indication: Product used for unknown indication
     Dosage: 7.5 MILLIGRAM, QD, START 2020
     Route: 065
  28. AVIBACTAM [Concomitant]
     Active Substance: AVIBACTAM
     Indication: Product used for unknown indication
     Dosage: 7.5 MILLIGRAM, QD,2.5 MILLIGRAM, START 2020
     Route: 065
  29. CASPOFUNGIN [Concomitant]
     Active Substance: CASPOFUNGIN
     Indication: Antifungal treatment
     Dosage: UNK, START 2020
     Route: 065
  30. VORICONAZOLE [Concomitant]
     Active Substance: VORICONAZOLE
     Indication: Antifungal treatment
     Dosage: 6 MG/KG EVERY 12 H ON DAY1, THEN 4 MG/KG TWICE A DAY, START 2020
     Route: 065
  31. VORICONAZOLE [Concomitant]
     Active Substance: VORICONAZOLE
     Dosage: UNK (2, UNK, QD)
     Route: 065
  32. VORICONAZOLE [Concomitant]
     Active Substance: VORICONAZOLE
     Dosage: 6 MILLIGRAM/KILOGRAM, BID (ON DAY 1), START AUG-2020
     Route: 065
  33. VORICONAZOLE [Concomitant]
     Active Substance: VORICONAZOLE
     Dosage: 6 MILLIGRAM/KILOGRAM, BID (200MG TWICE A DAY), START AUG-2020
     Route: 065
  34. VORICONAZOLE [Concomitant]
     Active Substance: VORICONAZOLE
     Dosage: 200 MILLIGRAM, BID(6 MG/KG EVERY 12 H ON DAY1, THEN 4 MG/KG TWICE A DAY), START 2020
     Route: 065
  35. VORICONAZOLE [Concomitant]
     Active Substance: VORICONAZOLE
     Dosage: 6 MG/KG EVERY 12 H ON DAY1, THEN 4 MG/KG TWICE A DAY, START 2020
  36. TAZOBACTAM [Concomitant]
     Active Substance: TAZOBACTAM
     Indication: Product used for unknown indication
     Dosage: UNK, START 2020
  37. CEFTOLOZANE [Concomitant]
     Active Substance: CEFTOLOZANE
     Indication: Product used for unknown indication
     Dosage: UNK, START 2020

REACTIONS (18)
  - Multiple organ dysfunction syndrome [Fatal]
  - Fungaemia [Fatal]
  - Septic shock [Fatal]
  - Geotrichum infection [Fatal]
  - Pseudomonas infection [Fatal]
  - Staphylococcal infection [Fatal]
  - Neutropenia [Fatal]
  - Nausea [Fatal]
  - Vomiting [Fatal]
  - Pyrexia [Fatal]
  - Enterococcal infection [Fatal]
  - Sphingomonas paucimobilis infection [Fatal]
  - Drug ineffective [Fatal]
  - Thrombocytopenia [Fatal]
  - Condition aggravated [Unknown]
  - Fungal infection [Unknown]
  - Fungal sepsis [Unknown]
  - Off label use [Unknown]

NARRATIVE: CASE EVENT DATE: 20190101
